FAERS Safety Report 14533391 (Version 2)
Quarter: 2018Q1

REPORT INFORMATION
  Report Type: Spontaneous
  Country: US (occurrence: US)
  Receive Date: 20180215
  Receipt Date: 20180307
  Transmission Date: 20180509
  Serious: Yes (Other)
  Sender: FDA-Public Use
  Company Number: US-ACCORD-063275

PATIENT
  Age: 59 Year
  Sex: Male

DRUGS (1)
  1. ITRACONAZOLE. [Suspect]
     Active Substance: ITRACONAZOLE
     Indication: COCCIDIOIDOMYCOSIS
     Dosage: 300 MG PO TWICE DAILY
     Route: 048

REACTIONS (4)
  - Cortisol increased [Recovered/Resolved]
  - Apparent mineralocorticoid excess [Recovered/Resolved]
  - Blood potassium increased [Recovered/Resolved]
  - Oestradiol increased [Recovered/Resolved]
